FAERS Safety Report 5927059-4 (Version None)
Quarter: 2008Q4

REPORT INFORMATION
  Report Type: 
  Country: None (occurrence: None)
  Receive Date: 20081022
  Receipt Date: 20081015
  Transmission Date: 20090506
  Serious: Yes (Other)
  Sender: FDA-Public Use
  Company Number: PHEH2008US09313

PATIENT
  Sex: Male
  Weight: 102.95 kg

DRUGS (1)
  1. EXFORGE [Suspect]
     Indication: HYPERTENSION
     Dosage: 5/320 MG QD
     Dates: start: 20080204, end: 20081014

REACTIONS (1)
  - SWOLLEN TONGUE [None]
